FAERS Safety Report 5408259-9 (Version None)
Quarter: 2007Q3

REPORT INFORMATION
  Report Type: 
  Country: None (occurrence: None)
  Receive Date: 20070808
  Receipt Date: 20070731
  Transmission Date: 20080115
  Serious: Yes (Death)
  Sender: FDA-Public Use
  Company Number: AT-BAYER-200714429GDS

PATIENT
  Age: 31 Year
  Sex: Male

DRUGS (15)
  1. ASPIRIN [Suspect]
     Route: 065
  2. EPHEDRIN [Suspect]
     Indication: DRUG ABUSER
     Route: 065
  3. CAPTAGON [Suspect]
     Indication: DRUG ABUSER
     Route: 065
  4. CLENBUTEROL [Suspect]
     Indication: DRUG ABUSER
     Route: 065
  5. VALIUM [Suspect]
     Indication: DRUG ABUSER
     Route: 065
  6. TESTOVIRON [Suspect]
     Indication: DRUG ABUSER
     Route: 065
  7. PARABOLAN [Suspect]
     Indication: DRUG ABUSER
     Route: 065
  8. MASTERON [Suspect]
     Indication: DRUG ABUSER
     Route: 065
  9. WINSTROL [Suspect]
     Indication: DRUG ABUSER
     Route: 065
  10. HALOTESTIN [Suspect]
     Indication: DRUG ABUSER
     Route: 065
  11. STROMBA [Suspect]
     Indication: DRUG ABUSER
     Route: 065
  12. SOMATROPIN [Suspect]
     Indication: DRUG ABUSER
     Route: 065
  13. INSULIN [Suspect]
     Indication: DRUG ABUSER
     Route: 065
  14. ALDACTONE [Suspect]
     Indication: DRUG ABUSER
     Route: 065
  15. LASIX [Suspect]
     Indication: DRUG ABUSER
     Route: 065

REACTIONS (3)
  - DRUG TOXICITY [None]
  - HEPATIC NEOPLASM [None]
  - MULTI-ORGAN FAILURE [None]
